FAERS Safety Report 22090626 (Version 1)
Quarter: 2023Q1

REPORT INFORMATION
  Report Type: Spontaneous
  Country: CA (occurrence: CA)
  Receive Date: 20230313
  Receipt Date: 20230313
  Transmission Date: 20230418
  Serious: Yes (Hospitalization)
  Sender: FDA-Public Use
  Company Number: CA-HLS-202300467

PATIENT
  Age: 36 Year
  Sex: Male

DRUGS (1)
  1. CLOZARIL [Suspect]
     Active Substance: CLOZAPINE
     Indication: Psychotic disorder
     Dosage: TABLETS DOSAGE FORM?THERAPY DURATION: 20 DAYS
     Route: 065

REACTIONS (11)
  - Chest pain [Unknown]
  - C-reactive protein increased [Unknown]
  - Diarrhoea [Unknown]
  - Dyspnoea [Unknown]
  - Myocarditis [Unknown]
  - Nausea [Unknown]
  - Pericardial effusion [Unknown]
  - Tachycardia [Unknown]
  - Troponin increased [Unknown]
  - Vomiting [Unknown]
  - White blood cell count increased [Unknown]
